FAERS Safety Report 11714522 (Version 1)
Quarter: 2015Q4

REPORT INFORMATION
  Report Type: Spontaneous
  Country: US (occurrence: None)
  Receive Date: 20151106
  Receipt Date: 20151106
  Transmission Date: 20160304
  Serious: Yes (Disabling)
  Sender: FDA-Public Use
  Company Number: None

PATIENT
  Age: 65 Year
  Sex: Male
  Weight: 112 kg

DRUGS (2)
  1. OMALIZUMAB [Suspect]
     Active Substance: OMALIZUMAB
     Indication: IDIOPATHIC ANGIOEDEMA
     Route: 028
  2. OMALIZUMAB [Suspect]
     Active Substance: OMALIZUMAB
     Indication: URTICARIA
     Route: 028

REACTIONS (2)
  - Asthenia [None]
  - Myalgia [None]

NARRATIVE: CASE EVENT DATE: 20150824
